FAERS Safety Report 6105236-X (Version None)
Quarter: 2009Q1

REPORT INFORMATION
  Report Type: 
  Country: None (occurrence: None)
  Receive Date: 20090304
  Receipt Date: 20090216
  Transmission Date: 20090719
  Serious: Yes (Life-Threatening, Hospitalization)
  Sender: FDA-Public Use
  Company Number: JPI-P-006137

PATIENT
  Age: 67 Year
  Sex: Male

DRUGS (2)
  1. XYREM [Suspect]
     Indication: DRUG USE FOR UNKNOWN INDICATION
     Dosage: 4.5 GM (2.25 GM, 2 IN 1 D),ORAL;  9 GM (4.5 GM, 2 IN 1DIA),ORAL
     Route: 048
     Dates: start: 20040914
  2. XYREM [Suspect]
     Indication: DRUG USE FOR UNKNOWN INDICATION
     Dosage: 4.5 GM (2.25 GM, 2 IN 1 D),ORAL;  9 GM (4.5 GM, 2 IN 1DIA),ORAL
     Route: 048
     Dates: start: 20081210

REACTIONS (4)
  - BRAIN INJURY [None]
  - CEREBRAL HAEMORRHAGE [None]
  - FALL [None]
  - UNRESPONSIVE TO STIMULI [None]
